FAERS Safety Report 18001131 (Version 1)
Quarter: 2020Q3

REPORT INFORMATION
  Report Type: Spontaneous
  Country: US (occurrence: US)
  Receive Date: 20200709
  Receipt Date: 20200709
  Transmission Date: 20201103
  Serious: Yes (Other)
  Sender: FDA-Public Use
  Company Number: US-MYLANLABS-2020M1061569

PATIENT
  Age: 75 Year
  Sex: Female
  Weight: 88.9 kg

DRUGS (4)
  1. INSPRA                             /01362602/ [Concomitant]
     Active Substance: MONTELUKAST SODIUM
     Indication: SUPRAVENTRICULAR EXTRASYSTOLES
     Dosage: 50 MILLIGRAM, BID
  2. FUROSEMIDE. [Suspect]
     Active Substance: FUROSEMIDE
     Dosage: 120 MILLIGRAM, BID
     Dates: start: 2007
  3. DOFETILIDE. [Suspect]
     Active Substance: DOFETILIDE
     Indication: ATRIAL FIBRILLATION
     Dosage: 250MCG CAPSULE, ONCE IN THE MORNING AND ONCE IN THE EVENING
  4. FUROSEMIDE. [Suspect]
     Active Substance: FUROSEMIDE
     Indication: PRODUCT USED FOR UNKNOWN INDICATION
     Dosage: UNK

REACTIONS (6)
  - Heart rate increased [Unknown]
  - Joint injury [Unknown]
  - Fall [Unknown]
  - Hip fracture [Unknown]
  - Limb injury [Unknown]
  - Hand fracture [Unknown]

NARRATIVE: CASE EVENT DATE: 201705
